FAERS Safety Report 18213437 (Version 1)
Quarter: 2020Q3

REPORT INFORMATION
  Report Type: Spontaneous
  Country: US (occurrence: US)
  Receive Date: 20200831
  Receipt Date: 20200831
  Transmission Date: 20201103
  Serious: Yes (Hospitalization)
  Sender: FDA-Public Use
  Company Number: None

PATIENT
  Age: 72 Year
  Sex: Male
  Weight: 78 kg

DRUGS (3)
  1. RIFAMPIN (RIFAMPIN 300MG CAP) [Suspect]
     Active Substance: RIFAMPIN
     Indication: BACTERAEMIA
     Route: 048
     Dates: start: 20200805, end: 20200811
  2. RIFAMPIN (RIFAMPIN 300MG CAP) [Suspect]
     Active Substance: RIFAMPIN
     Indication: OSTEOMYELITIS
     Route: 048
     Dates: start: 20200805, end: 20200811
  3. ATORVASTATIN (ATORVASTATIN CA 40MG TAB) [Suspect]
     Active Substance: ATORVASTATIN CALCIUM
     Indication: HYPERLIPIDAEMIA
     Route: 048
     Dates: start: 20200724, end: 20200811

REACTIONS (2)
  - Hepatic enzyme increased [None]
  - Aspartate aminotransferase increased [None]

NARRATIVE: CASE EVENT DATE: 20200811
